FAERS Safety Report 18614980 (Version 2)
Quarter: 2021Q3

REPORT INFORMATION
  Report Type: Report from Study
  Country: US (occurrence: US)
  Receive Date: 20201214
  Receipt Date: 20210701
  Transmission Date: 20211014
  Serious: No
  Sender: FDA-Public Use
  Company Number: US-TAKEDA-2020TUS056352

PATIENT
  Sex: Female
  Weight: 87.98 kg

DRUGS (17)
  1. PROVENTIL [Concomitant]
     Active Substance: ALBUTEROL
  2. CHLORPROMAZINE. [Concomitant]
     Active Substance: CHLORPROMAZINE
  3. EPINEPHRINE. [Concomitant]
     Active Substance: EPINEPHRINE
  4. ONDANSETRON [Concomitant]
     Active Substance: ONDANSETRON
  5. SYNTHROID [Concomitant]
     Active Substance: LEVOTHYROXINE SODIUM
  6. DIPHENHYDRAMINE. [Concomitant]
     Active Substance: DIPHENHYDRAMINE
     Dosage: UNK
  7. JANUMET [Concomitant]
     Active Substance: METFORMIN HYDROCHLORIDE\SITAGLIPTIN PHOSPHATE
  8. ZYRTEC [Concomitant]
     Active Substance: CETIRIZINE HYDROCHLORIDE
  9. LYRICA [Concomitant]
     Active Substance: PREGABALIN
  10. NEXIUM I.V. [Concomitant]
     Active Substance: ESOMEPRAZOLE SODIUM
     Dosage: UNK
  11. CUVITRU [Suspect]
     Active Substance: HUMAN IMMUNOGLOBULIN G
     Indication: IMMUNODEFICIENCY COMMON VARIABLE
     Dosage: 16 GRAM, 1/WEEK
     Route: 058
     Dates: start: 20201110
  12. HUMULIN R [Concomitant]
     Active Substance: INSULIN HUMAN
  13. LIPITOR [Concomitant]
     Active Substance: ATORVASTATIN CALCIUM
  14. ADVAIR HFA [Concomitant]
     Active Substance: FLUTICASONE PROPIONATE\SALMETEROL XINAFOATE
  15. LMX4 [Concomitant]
     Active Substance: LIDOCAINE
  16. LAMICTAL [Concomitant]
     Active Substance: LAMOTRIGINE
  17. ACETAMINOPHEN. [Concomitant]
     Active Substance: ACETAMINOPHEN

REACTIONS (2)
  - Infusion site bruising [Unknown]
  - Product dose omission issue [Unknown]
